FAERS Safety Report 19708289 (Version 1)
Quarter: 2021Q3

REPORT INFORMATION
  Report Type: Spontaneous
  Country: TR (occurrence: TR)
  Receive Date: 20210817
  Receipt Date: 20210817
  Transmission Date: 20211014
  Serious: Yes (Other)
  Sender: FDA-Public Use
  Company Number: TR-SUN PHARMACEUTICAL INDUSTRIES LTD-2021R1-305301

PATIENT
  Age: 19 Year
  Sex: Female

DRUGS (4)
  1. METHOTREXATE. [Suspect]
     Active Substance: METHOTREXATE
     Indication: OSTEOSARCOMA
     Dosage: 8 GRAM PER SQUARE METRE, 2/WEEK
     Route: 065
  2. FOLINIC ACID [Concomitant]
     Active Substance: LEUCOVORIN
     Indication: PRODUCT USED FOR UNKNOWN INDICATION
     Dosage: UNK
     Route: 065
  3. FAVIPIRAVIR [Interacting]
     Active Substance: FAVIPIRAVIR
     Indication: OSTEOSARCOMA METASTATIC
     Dosage: 1600 MILLIGRAM, QD (ON THE 1ST DAY)
     Route: 065
  4. FAVIPIRAVIR [Interacting]
     Active Substance: FAVIPIRAVIR
     Dosage: 600 MILLIGRAM, QD (ON THE 2ND DAY)
     Route: 065

REACTIONS (2)
  - Drug interaction [Unknown]
  - Hepatitis toxic [Recovered/Resolved]
